FAERS Safety Report 13620005 (Version 1)
Quarter: 2017Q2

REPORT INFORMATION
  Report Type: Report from Study
  Country: BR (occurrence: BR)
  Receive Date: 20170607
  Receipt Date: 20170607
  Transmission Date: 20170830
  Serious: Yes (Life-Threatening, Other)
  Sender: FDA-Public Use
  Company Number: PHHY2017BR079252

PATIENT
  Sex: Female
  Weight: 97 kg

DRUGS (5)
  1. DIOVAN HCT [Suspect]
     Active Substance: HYDROCHLOROTHIAZIDE\VALSARTAN
     Indication: HYPERTENSION
     Dosage: 1 DF, QD (160 / 12.5  MG)
     Route: 048
  2. GALVUS MET [Suspect]
     Active Substance: METFORMIN HYDROCHLORIDE\VILDAGLIPTIN
     Indication: DIABETES MELLITUS
     Dosage: 1 DF, BID (500/50 MG) (ONE IN THE MORNING AND ONE AT NIGHT)
     Route: 048
  3. ATENOLOL. [Suspect]
     Active Substance: ATENOLOL
     Indication: HYPERTENSION
     Dosage: 2 DF, QD
     Route: 048
     Dates: start: 2005
  4. METFORMIN HYDROCHLORIDE. [Suspect]
     Active Substance: METFORMIN HYDROCHLORIDE
     Indication: DIABETES MELLITUS
     Dosage: 3 DF, QD (ONE IN THE MORNING, ONE AT MIDDAY AND ONE AT NIGHT)
     Route: 048
  5. ENALAPRIL [Interacting]
     Active Substance: ENALAPRIL
     Indication: HYPERTENSION
     Dosage: 1 OR 2 PER DAY
     Route: 048

REACTIONS (8)
  - Fall [Unknown]
  - Visual impairment [Unknown]
  - Blood glucose fluctuation [Unknown]
  - Drug intolerance [Unknown]
  - Feeling abnormal [Unknown]
  - Dizziness [Unknown]
  - Blood glucose increased [Unknown]
  - Productive cough [Recovered/Resolved]
